FAERS Safety Report 6554990-1 (Version None)
Quarter: 2010Q1

REPORT INFORMATION
  Report Type: 
  Country: None (occurrence: None)
  Receive Date: 20100126
  Receipt Date: 20100126
  Transmission Date: 20100710
  Serious: Yes (Hospitalization)
  Sender: FDA-Public Use
  Company Number: None

PATIENT
  Age: 54 Year
  Sex: Male
  Weight: 53.3 kg

DRUGS (2)
  1. OXALIPLATIN [Suspect]
     Indication: PANCREATIC CARCINOMA METASTATIC
     Dosage: 64MG/M2 Q 2 WEEKS IV
     Route: 042
     Dates: start: 20090421
  2. SORAFENIB 200 MG TAB BAYER PHARMACEUTICALS [Suspect]
     Indication: PANCREATIC CARCINOMA METASTATIC
     Dosage: 200 MG TAKEN EVERY DAY IV
     Route: 042
     Dates: start: 20090421

REACTIONS (6)
  - ANAEMIA [None]
  - DUODENAL STENOSIS [None]
  - GASTROINTESTINAL HAEMORRHAGE [None]
  - HYPOTENSION [None]
  - REFUSAL OF TREATMENT BY RELATIVE [None]
  - SYNCOPE [None]
